FAERS Safety Report 9349428 (Version 1)
Quarter: 2013Q2

REPORT INFORMATION
  Report Type: Report from Study
  Country: US (occurrence: US)
  Receive Date: 20130614
  Receipt Date: 20130614
  Transmission Date: 20140414
  Serious: Yes (Other)
  Sender: FDA-Public Use
  Company Number: US-ABBOTT-13P-163-1101635-00

PATIENT
  Sex: Female

DRUGS (3)
  1. HUMIRA [Suspect]
     Indication: CROHN^S DISEASE
     Dates: start: 2009, end: 2011
  2. HUMIRA [Suspect]
     Dosage: LOADING DOSES: 160MG, 80MG
     Dates: start: 20130523
  3. UNKNOWN MEDICATIONS [Concomitant]
     Indication: PRODUCT USED FOR UNKNOWN INDICATION

REACTIONS (5)
  - Middle ear effusion [Recovered/Resolved]
  - Transient ischaemic attack [Recovered/Resolved]
  - Deafness [Recovered/Resolved]
  - Complicated migraine [Recovered/Resolved]
  - Nephrolithiasis [Recovered/Resolved]
